FAERS Safety Report 8975962 (Version 1)
Quarter: 2012Q4

REPORT INFORMATION
  Report Type: 
  Country: US (occurrence: US)
  Receive Date: 20121219
  Receipt Date: 20121219
  Transmission Date: 20130627
  Serious: Yes (Hospitalization)
  Sender: FDA-Public Use
  Company Number: US-BAYER-2012-132460

PATIENT
  Age: 21 Year
  Sex: Female

DRUGS (10)
  1. YAZ [Suspect]
  2. YASMIN [Suspect]
  3. PERCOCET [Concomitant]
  4. NAPROXEN [Concomitant]
  5. IBUPROFEN [Concomitant]
  6. ACETAMINOPHEN W/OXYCODONE [Concomitant]
  7. RETIN-A MICRO [Concomitant]
  8. DUAC [Concomitant]
  9. CLEOCIN T [Concomitant]
     Dosage: UNK
     Dates: start: 20070612, end: 20091023
  10. MINOCYCLINE [Concomitant]
     Dosage: UNK
     Dates: start: 20070411, end: 20091023

REACTIONS (1)
  - Deep vein thrombosis [None]
